FAERS Safety Report 5221292-5 (Version None)
Quarter: 2007Q1

REPORT INFORMATION
  Report Type: 
  Country: None (occurrence: None)
  Receive Date: 20070126
  Receipt Date: 20070117
  Transmission Date: 20070707
  Serious: Yes (Hospitalization, Other)
  Sender: FDA-Public Use
  Company Number: US-PFIZER INC-2006148800

PATIENT
  Sex: Female
  Weight: 69.9 kg

DRUGS (4)
  1. LIPITOR [Suspect]
     Indication: BLOOD CHOLESTEROL INCREASED
  2. ANTIBIOTICS [Suspect]
     Indication: OTITIS MEDIA
  3. SYNTHROID [Concomitant]
  4. TOPROL-XL [Concomitant]

REACTIONS (6)
  - ASTHENIA [None]
  - MYALGIA [None]
  - OTITIS MEDIA [None]
  - POLYARTERITIS NODOSA [None]
  - RASH [None]
  - SCIATICA [None]
